FAERS Safety Report 6522354-2 (Version None)
Quarter: 2009Q4

REPORT INFORMATION
  Report Type: 
  Country: None (occurrence: None)
  Receive Date: 20091230
  Receipt Date: 20091217
  Transmission Date: 20100525
  Serious: Yes (Other)
  Sender: FDA-Public Use
  Company Number: B0621749A

PATIENT
  Age: 45 Year
  Sex: Female

DRUGS (5)
  1. ACITRETIN [Suspect]
     Indication: SUBCORNEAL PUSTULAR DERMATOSIS
     Route: 065
  2. PREDNISONE [Suspect]
     Indication: DRUG USE FOR UNKNOWN INDICATION
     Route: 065
  3. FLUOCINONIDE [Suspect]
     Indication: DRUG USE FOR UNKNOWN INDICATION
     Route: 061
  4. HYDROCODONE [Concomitant]
  5. ACETAMINOPHEN [Concomitant]

REACTIONS (4)
  - HYPERCHOLESTEROLAEMIA [None]
  - HYPERTRIGLYCERIDAEMIA [None]
  - NEUTROPENIA [None]
  - WHITE BLOOD CELL COUNT DECREASED [None]
